FAERS Safety Report 25082081 (Version 3)
Quarter: 2025Q2

REPORT INFORMATION
  Report Type: Spontaneous
  Country: CA (occurrence: CA)
  Receive Date: 20250317
  Receipt Date: 20250529
  Transmission Date: 20250717
  Serious: Yes (Other)
  Sender: INTERCEPT PHARMACEUTICALS
  Company Number: CA-ADVANZ PHARMA-202501000506

PATIENT
  Age: 71 Year
  Sex: Female

DRUGS (3)
  1. OBETICHOLIC ACID [Suspect]
     Active Substance: OBETICHOLIC ACID
     Indication: Primary biliary cholangitis
     Route: 048
     Dates: start: 20250116
  2. VOLTAREN [Concomitant]
     Active Substance: DICLOFENAC SODIUM
     Indication: Back pain
  3. TYLENOL [Concomitant]
     Active Substance: ACETAMINOPHEN
     Indication: Back pain

REACTIONS (9)
  - Bladder perforation [Unknown]
  - Bladder operation [Unknown]
  - Gastrooesophageal reflux disease [Unknown]
  - Malaise [Unknown]
  - Nodule [Unknown]
  - Fall [Unknown]
  - Eye contusion [Unknown]
  - Post procedural erythema [Unknown]
  - Post procedural pruritus [Unknown]
